FAERS Safety Report 6767041-0 (Version None)
Quarter: 2010Q2

REPORT INFORMATION
  Report Type: 
  Country: None (occurrence: None)
  Receive Date: 20100611
  Receipt Date: 20100604
  Transmission Date: 20101027
  Serious: Yes (Other)
  Sender: FDA-Public Use
  Company Number: US-AMGEN-QUU412357

PATIENT
  Sex: Female
  Weight: 92.6 kg

DRUGS (11)
  1. NPLATE [Suspect]
     Indication: IDIOPATHIC THROMBOCYTOPENIC PURPURA
     Route: 058
     Dates: start: 20100208, end: 20100506
  2. RITUXIMAB [Concomitant]
     Dates: start: 20100114, end: 20100322
  3. VALTREX [Concomitant]
  4. FOLIC ACID [Concomitant]
  5. PENICILLIN VK [Concomitant]
  6. DAPSONE [Concomitant]
  7. KLONOPIN [Concomitant]
  8. VITAMIN D [Concomitant]
  9. OS-CAL [Concomitant]
  10. DIFLUCAN [Concomitant]
  11. PREDNISONE [Concomitant]
     Dates: start: 20100114

REACTIONS (6)
  - DRUG INEFFECTIVE [None]
  - FLUID RETENTION [None]
  - MYALGIA [None]
  - PHOTOSENSITIVITY REACTION [None]
  - RETICULIN INCREASED [None]
  - THROMBOCYTOPENIA [None]
